FAERS Safety Report 25841835 (Version 3)
Quarter: 2025Q4

REPORT INFORMATION
  Report Type: Spontaneous
  Country: JP (occurrence: JP)
  Receive Date: 20250924
  Receipt Date: 20251223
  Transmission Date: 20260119
  Serious: Yes (Hospitalization, Other)
  Sender: BRISTOL-MYERS SQUIBB COMPANY
  Company Number: JP-ONO-2025JP016797

PATIENT
  Age: 9 Decade
  Sex: Female

DRUGS (1)
  1. OPDIVO [Suspect]
     Active Substance: NIVOLUMAB
     Indication: Malignant neoplasm of unknown primary site
     Route: 041

REACTIONS (4)
  - Systemic scleroderma [Unknown]
  - Thrombotic microangiopathy [Unknown]
  - Scleroderma renal crisis [Recovering/Resolving]
  - Interstitial lung disease [Unknown]
